FAERS Safety Report 15608689 (Version 6)
Quarter: 2020Q3

REPORT INFORMATION
  Report Type: Spontaneous
  Country: US (occurrence: US)
  Receive Date: 20181112
  Receipt Date: 20200716
  Transmission Date: 20201102
  Serious: No
  Sender: FDA-Public Use
  Company Number: US-SA-2018SA306751

PATIENT

DRUGS (20)
  1. LISINOPRIL. [Concomitant]
     Active Substance: LISINOPRIL
  2. OTREXUP [Concomitant]
     Active Substance: METHOTREXATE
  3. DESOXIMETASON [Concomitant]
     Active Substance: DESOXIMETASONE
  4. DUPIXENT [Suspect]
     Active Substance: DUPILUMAB
     Dosage: 300 MG, QOW
     Route: 058
     Dates: start: 20171227
  5. BACTROBAN [Concomitant]
     Active Substance: MUPIROCIN\MUPIROCIN CALCIUM
  6. PROTOPIC [Concomitant]
     Active Substance: TACROLIMUS
  7. ACYCLOVIR [ACICLOVIR] [Concomitant]
     Active Substance: ACYCLOVIR
  8. METFORMIN [Concomitant]
     Active Substance: METFORMIN HYDROCHLORIDE
  9. SYMBICORT [Concomitant]
     Active Substance: BUDESONIDE\FORMOTEROL FUMARATE DIHYDRATE
     Dosage: AER 160?4.5
  10. PROAIR HFA [Concomitant]
     Active Substance: ALBUTEROL SULFATE
     Dosage: HFA AER
  11. TOPICORT [Concomitant]
     Active Substance: DESOXIMETASONE
  12. SINGULAIR [Concomitant]
     Active Substance: MONTELUKAST SODIUM
  13. XARELTO [Concomitant]
     Active Substance: RIVAROXABAN
  14. MONTELUKAST [Concomitant]
     Active Substance: MONTELUKAST SODIUM
  15. DUPIXENT [Suspect]
     Active Substance: DUPILUMAB
     Indication: DERMATITIS ATOPIC
     Dosage: 300 MG, QOW
     Route: 058
     Dates: start: 20170609
  16. PREDNISONE. [Concomitant]
     Active Substance: PREDNISONE
  17. KETOCONAZOLE. [Concomitant]
     Active Substance: KETOCONAZOLE
  18. AMARYL [Concomitant]
     Active Substance: GLIMEPIRIDE
     Dosage: UNK
  19. FLOVENT [Concomitant]
     Active Substance: FLUTICASONE PROPIONATE
  20. DESONIDE. [Concomitant]
     Active Substance: DESONIDE

REACTIONS (8)
  - Pain [Not Recovered/Not Resolved]
  - Dry eye [Not Recovered/Not Resolved]
  - Dermatitis atopic [Not Recovered/Not Resolved]
  - Fatigue [Not Recovered/Not Resolved]
  - Rash [Not Recovered/Not Resolved]
  - Dry eye [Not Recovered/Not Resolved]
  - Alopecia [Not Recovered/Not Resolved]
  - Dermatitis atopic [Not Recovered/Not Resolved]

NARRATIVE: CASE EVENT DATE: 20180201
